FAERS Safety Report 12555642 (Version 1)
Quarter: 2016Q3

REPORT INFORMATION
  Report Type: Spontaneous
  Country: US (occurrence: None)
  Receive Date: 20160713
  Receipt Date: 20160713
  Transmission Date: 20161109
  Serious: No
  Sender: FDA-Public Use
  Company Number: None

PATIENT
  Age: 76 Year
  Sex: Female
  Weight: 61.24 kg

DRUGS (7)
  1. METOPROLOL. [Concomitant]
     Active Substance: METOPROLOL
  2. PIOGLITAZONE. [Suspect]
     Active Substance: PIOGLITAZONE
     Dates: start: 20160627, end: 20160711
  3. LANTUS [Concomitant]
     Active Substance: INSULIN GLARGINE
  4. PREDNISOLONE. [Concomitant]
     Active Substance: PREDNISOLONE
  5. METFORMIN [Concomitant]
     Active Substance: METFORMIN HYDROCHLORIDE
  6. LANTOPROST [Concomitant]
  7. LOVASTATIN. [Concomitant]
     Active Substance: LOVASTATIN

REACTIONS (2)
  - Blood glucose increased [None]
  - Decreased appetite [None]

NARRATIVE: CASE EVENT DATE: 20160711
